FAERS Safety Report 8517029-4 (Version None)
Quarter: 2012Q3

REPORT INFORMATION
  Report Type: 
  Country: None (occurrence: None)
  Receive Date: 20120706
  Receipt Date: 20120623
  Transmission Date: 20120928
  Serious: Yes (Death)
  Sender: FDA-Public Use
  Company Number: JP-2012-15390

PATIENT
  Age: 83 Year
  Sex: Female
  Weight: 43 kg

DRUGS (7)
  1. SODIUM POLYSTYRENE SULFONATE [Concomitant]
  2. LASIX [Concomitant]
  3. LANSOPRAZOLE [Concomitant]
  4. URINORM (BENZBROMARONE) [Concomitant]
  5. DOPUTAMIN (DOPUTAMINE HYDROCHLORIDE) [Concomitant]
  6. SAMSCA [Suspect]
     Indication: FLUID RETENTION
     Dosage: 15 MG, QAM, ORAL
     Route: 048
     Dates: start: 20120519, end: 20120528
  7. MEROPENEM [Concomitant]

REACTIONS (6)
  - THIRST [None]
  - CARDIAC FAILURE [None]
  - DISSEMINATED INTRAVASCULAR COAGULATION [None]
  - CONDITION AGGRAVATED [None]
  - HYPERNATRAEMIA [None]
  - RENAL IMPAIRMENT [None]
